FAERS Safety Report 6326468-1 (Version None)
Quarter: 2009Q3

REPORT INFORMATION
  Report Type: 
  Country: None (occurrence: None)
  Receive Date: 20090825
  Receipt Date: 20070329
  Transmission Date: 20100115
  Serious: Yes (Hospitalization, Other)
  Sender: FDA-Public Use
  Company Number: US-ASTRAZENECA-2006UW08759

PATIENT
  Age: 16717 Day
  Sex: Female
  Weight: 134.7 kg

DRUGS (24)
  1. SEROQUEL [Suspect]
     Indication: DEPRESSION
     Route: 048
     Dates: start: 19980101, end: 20020101
  2. SEROQUEL [Suspect]
     Indication: BIPOLAR DISORDER
     Route: 048
     Dates: start: 19980101, end: 20020101
  3. SEROQUEL [Suspect]
     Indication: SCHIZOPHRENIA
     Route: 048
     Dates: start: 19980101, end: 20020101
  4. SEROQUEL [Suspect]
     Dosage: 75 MG TO 500 MG
     Route: 048
     Dates: start: 19980317
  5. SEROQUEL [Suspect]
     Dosage: 75 MG TO 500 MG
     Route: 048
     Dates: start: 19980317
  6. SEROQUEL [Suspect]
     Dosage: 75 MG TO 500 MG
     Route: 048
     Dates: start: 19980317
  7. SEROQUEL [Suspect]
     Dosage: DOSE AS USED- 200 MG , TOTAL DAILY DOSE-200 MG
     Route: 048
     Dates: start: 20030101
  8. SEROQUEL [Suspect]
     Dosage: DOSE AS USED- 200 MG , TOTAL DAILY DOSE-200 MG
     Route: 048
     Dates: start: 20030101
  9. SEROQUEL [Suspect]
     Dosage: DOSE AS USED- 200 MG , TOTAL DAILY DOSE-200 MG
     Route: 048
     Dates: start: 20030101
  10. RISPERDAL [Suspect]
     Dosage: 2 MG TO 4 MG
     Route: 048
     Dates: start: 19990704
  11. RISPERDAL [Suspect]
     Dates: end: 19980317
  12. RISPERDAL [Suspect]
     Dosage: TOTAL DAILY DOSE - 2 MG
     Dates: start: 20000101, end: 20020101
  13. RISPERDAL [Suspect]
     Dosage: TOTAL DAILY DOSE- 4MG
     Dates: start: 20040101, end: 20060101
  14. ZYPREXA [Suspect]
     Dosage: DOSE USED-15 MG, TOTAL DAILY DOSE USED -30 MG
     Dates: start: 20000101, end: 20030101
  15. ZYPREXA [Suspect]
     Dates: start: 20000811, end: 20040101
  16. GEODON [Concomitant]
     Dosage: TOTAL DAILY DOSE-20 MG
  17. HALDOL [Concomitant]
  18. STELAZINE [Concomitant]
  19. THORAZINE [Concomitant]
  20. DEPAKOTE [Concomitant]
     Dosage: 500 MG TO 2000 MG
     Dates: start: 19980317
  21. AMBIEN [Concomitant]
     Indication: INSOMNIA
     Dosage: 10 MG AT BEDTIME P.R.N
     Dates: start: 19990704
  22. ZOCOR [Concomitant]
     Dates: start: 20000602
  23. ZOLOFT [Concomitant]
     Indication: DEPRESSION
     Dosage: 100 MG TO 150 MG
     Dates: start: 19980317
  24. GLYBURIDE [Concomitant]
     Route: 048
     Dates: start: 20001108

REACTIONS (9)
  - BLOOD CHOLESTEROL INCREASED [None]
  - BLOOD TRIGLYCERIDES INCREASED [None]
  - DIABETES MELLITUS [None]
  - OBESITY [None]
  - SCHIZOAFFECTIVE DISORDER [None]
  - SCHIZOAFFECTIVE DISORDER BIPOLAR TYPE [None]
  - SCHIZOPHRENIA [None]
  - SCHIZOPHRENIA, PARANOID TYPE [None]
  - SCHIZOPHRENIFORM DISORDER [None]
